FAERS Safety Report 10268717 (Version 1)
Quarter: 2014Q2

REPORT INFORMATION
  Report Type: Spontaneous
  Country: HU (occurrence: HU)
  Receive Date: 20140630
  Receipt Date: 20140630
  Transmission Date: 20141212
  Serious: Yes (Hospitalization, Other)
  Sender: FDA-Public Use
  Company Number: HU-ACTAVIS-2014-13785

PATIENT
  Age: 68 Year
  Sex: Female

DRUGS (2)
  1. CLOPIDOGREL (UNKNOWN) [Suspect]
     Indication: ANTICOAGULANT THERAPY
     Dosage: UNK
     Route: 065
  2. WARFARIN (UNKNOWN) [Suspect]
     Indication: ANTICOAGULANT THERAPY
     Dosage: UNK
     Route: 065

REACTIONS (6)
  - Renal impairment [Unknown]
  - Cystitis haemorrhagic [Unknown]
  - Spontaneous haematoma [Recovered/Resolved]
  - Haemorrhagic anaemia [Unknown]
  - International normalised ratio increased [Recovered/Resolved]
  - Gastrointestinal necrosis [Unknown]
